FAERS Safety Report 8200348-9 (Version None)
Quarter: 2012Q1

REPORT INFORMATION
  Report Type: 
  Country: None (occurrence: None)
  Receive Date: 20120312
  Receipt Date: 20120308
  Transmission Date: 20120608
  Serious: Yes (Hospitalization)
  Sender: FDA-Public Use
  Company Number: DE-AMGEN-DEUSP2012012181

PATIENT
  Age: 92 Year
  Sex: Female
  Weight: 58 kg

DRUGS (11)
  1. PROLIA [Suspect]
     Indication: OSTEOPOROSIS POSTMENOPAUSAL
     Dosage: 60 MG, UNK
     Route: 058
     Dates: start: 20100610, end: 20110609
  2. ASPIRIN [Concomitant]
     Dosage: UNK UNK, QD
  3. CALCILAC [Concomitant]
     Indication: OSTEOPOROSIS
  4. PAN-OPHTAL [Concomitant]
     Dosage: UNK UNK, TID
  5. MONOLONG [Concomitant]
     Indication: HYPERTENSION
     Dosage: UNK UNK, QD
  6. CANDESARTAN CILEXETIL [Concomitant]
     Indication: HYPERTENSION
     Dosage: UNK UNK, QD
  7. TORSEMIDE [Concomitant]
     Indication: HYPERTENSION
     Dosage: UNK UNK, QD
  8. IBUPROFEN [Concomitant]
     Indication: PAIN
     Dosage: 400 MG, PRN
  9. NALOXONE [Concomitant]
     Indication: PAIN
     Dosage: UNK UNK, BID
  10. PANTOPRAZOLE [Concomitant]
     Indication: GASTROOESOPHAGEAL REFLUX DISEASE
     Dosage: UNK UNK, QD
  11. GABAPENTIN [Concomitant]
     Indication: PAIN
     Dosage: UNK UNK, QD

REACTIONS (1)
  - OSTEONECROSIS OF JAW [None]
